FAERS Safety Report 4846404-4 (Version None)
Quarter: 2005Q4

REPORT INFORMATION
  Report Type: 
  Country: None (occurrence: None)
  Receive Date: 20051115
  Receipt Date: 20050720
  Transmission Date: 20060501
  Serious: No
  Sender: FDA-Public Use
  Company Number: S05-USA-03659-02

PATIENT

DRUGS (6)
  1. NAMENDA [Suspect]
     Dosage: 10 MG BID PO
     Route: 048
  2. NAMENDA [Suspect]
     Dosage: 5 MG QD PO
     Route: 048
  3. NAMENDA [Suspect]
     Dosage: 5 MG BID PO
     Route: 048
  4. NAMENDA [Suspect]
     Dosage: 15 MG QD PO
     Route: 048
  5. ARICEPT [Concomitant]
  6. ZYPREXA [Concomitant]

REACTIONS (1)
  - SEDATION [None]
